FAERS Safety Report 10029623 (Version 1)
Quarter: 2014Q1

REPORT INFORMATION
  Report Type: Spontaneous
  Country: US (occurrence: None)
  Receive Date: 20140320
  Receipt Date: 20140320
  Transmission Date: 20141002
  Serious: Yes (Other)
  Sender: FDA-Public Use
  Company Number: None

PATIENT
  Age: 26 Year
  Sex: Male
  Weight: 78.2 kg

DRUGS (1)
  1. ALFA INTERFERON 2B (INTRON-A) [Suspect]

REACTIONS (2)
  - Erectile dysfunction [None]
  - Drug ineffective [None]
